FAERS Safety Report 7466189-5 (Version None)
Quarter: 2011Q2

REPORT INFORMATION
  Report Type: 
  Country: None (occurrence: None)
  Receive Date: 20110509
  Receipt Date: 20110425
  Transmission Date: 20111010
  Serious: Yes (Other)
  Sender: FDA-Public Use
  Company Number: US-ELI_LILLY_AND_COMPANY-US201103003505

PATIENT
  Sex: Male
  Weight: 124.72 kg

DRUGS (2)
  1. COUMADIN [Concomitant]
  2. CYMBALTA [Suspect]
     Indication: DEPRESSION

REACTIONS (3)
  - INTERNATIONAL NORMALISED RATIO INCREASED [None]
  - INTRACRANIAL ANEURYSM [None]
  - INTERNATIONAL NORMALISED RATIO DECREASED [None]
